FAERS Safety Report 26041454 (Version 1)
Quarter: 2025Q4

REPORT INFORMATION
  Report Type: Spontaneous
  Country: US (occurrence: US)
  Receive Date: 20251113
  Receipt Date: 20251113
  Transmission Date: 20260117
  Serious: Yes (Other)
  Sender: TEVA
  Company Number: US-TEVA-VS-3389234

PATIENT
  Age: 4 Year
  Sex: Female

DRUGS (8)
  1. HYDROCORTISONE [Suspect]
     Active Substance: HYDROCORTISONE
     Indication: Adrenogenital syndrome
     Dosage: 3.75 MG IN MORNING, 2.5 MG IN THE AFTERNOON, AND 1.25 MG AT NIGHT
     Route: 065
     Dates: start: 20250605, end: 20250731
  2. HYDROCORTISONE [Suspect]
     Active Substance: HYDROCORTISONE
     Indication: Adrenogenital syndrome
     Dosage: 3.75 MG IN MORNING, 2.5 MG IN THE AFTERNOON, AND 2.5 MG AT NIGHT
     Route: 065
     Dates: start: 20250731
  3. HYDROCORTISONE [Suspect]
     Active Substance: HYDROCORTISONE
     Indication: Adrenogenital syndrome
     Dosage: 3.75 MG IN MORNING, 2.5 MG IN THE AFTERNOON
     Route: 065
     Dates: start: 20250423
  4. HYDROCORTISONE [Suspect]
     Active Substance: HYDROCORTISONE
     Indication: Adrenogenital syndrome
     Dosage: 3.75 MG IN MORNING, 2.5 MG IN THE AFTERNOON  2.5 MG AT NIGHT TOOK THIS DOSE FOR YEAR
     Route: 065
     Dates: start: 2024, end: 2025
  5. FLUDROCORTISONE [Suspect]
     Active Substance: FLUDROCORTISONE
     Indication: Adrenogenital syndrome
     Dosage: MORNING,
     Route: 048
     Dates: start: 202411
  6. FLUDROCORTISONE [Suspect]
     Active Substance: FLUDROCORTISONE
     Indication: Adrenogenital syndrome
     Dosage: MON, WED AND FRIDAYS ONLY
     Route: 048
     Dates: start: 2025
  7. Solu Cortef (hydrocortisone sodium succinate). [Concomitant]
     Indication: Product used for unknown indication
     Route: 065
  8. CRENESSITY [Concomitant]
     Active Substance: CRINECERFONT
     Indication: Adrenogenital syndrome
     Route: 048
     Dates: start: 202503

REACTIONS (4)
  - Adrenal insufficiency [Recovered/Resolved]
  - Blood androstenedione increased [Recovered/Resolved]
  - 17-hydroxyprogesterone increased [Recovering/Resolving]
  - Renin increased [Recovered/Resolved]

NARRATIVE: CASE EVENT DATE: 20250701
